FAERS Safety Report 16260873 (Version 1)
Quarter: 2019Q2

REPORT INFORMATION
  Report Type: Spontaneous
  Country: DE (occurrence: DE)
  Receive Date: 20190501
  Receipt Date: 20190501
  Transmission Date: 20190711
  Serious: Yes (Hospitalization, Other)
  Sender: FDA-Public Use
  Company Number: DE-MYLANLABS-2019M1041549

PATIENT
  Age: 79 Year
  Sex: Female
  Weight: 70 kg

DRUGS (7)
  1. ELIQUIS [Suspect]
     Active Substance: APIXABAN
     Indication: CEREBROVASCULAR ACCIDENT PROPHYLAXIS
     Dosage: 5 MILLIGRAM, QD (2.5 MG, BID)
     Route: 065
     Dates: start: 201711
  2. TORASEMIDE [Concomitant]
     Active Substance: TORSEMIDE
     Indication: PRODUCT USED FOR UNKNOWN INDICATION
     Dosage: 5 MG, UNK
     Route: 065
     Dates: start: 201710
  3. ALDACTONE [Concomitant]
     Active Substance: SPIRONOLACTONE
     Indication: PRODUCT USED FOR UNKNOWN INDICATION
     Dosage: UNK
     Route: 065
     Dates: start: 201805
  4. IRBESARTAN. [Suspect]
     Active Substance: IRBESARTAN
     Indication: HYPOTENSION
     Dosage: 150 MILLIGRAM, QD
     Route: 065
     Dates: start: 2016, end: 20181101
  5. IRBESARTAN. [Suspect]
     Active Substance: IRBESARTAN
     Indication: OEDEMA PERIPHERAL
  6. HYDROCHLOROTHIAZIDE. [Suspect]
     Active Substance: HYDROCHLOROTHIAZIDE
     Indication: OEDEMA PERIPHERAL
     Dosage: 12.5 MILLIGRAM, QD
     Route: 065
     Dates: start: 201708, end: 20181101
  7. HYDROCHLOROTHIAZIDE. [Suspect]
     Active Substance: HYDROCHLOROTHIAZIDE
     Indication: HYPOTENSION

REACTIONS (6)
  - Myocardial infarction [Recovering/Resolving]
  - Confusional state [Unknown]
  - Prescribed underdose [Unknown]
  - Fatigue [Recovering/Resolving]
  - Listless [Recovering/Resolving]
  - Weight increased [Recovering/Resolving]

NARRATIVE: CASE EVENT DATE: 201712
